FAERS Safety Report 19170150 (Version 1)
Quarter: 2021Q2

REPORT INFORMATION
  Report Type: Spontaneous
  Country: CA (occurrence: CA)
  Receive Date: 20210422
  Receipt Date: 20210422
  Transmission Date: 20210717
  Serious: Yes (Life-Threatening)
  Sender: FDA-Public Use
  Company Number: NVSC2021CA089046

PATIENT
  Age: 62 Year
  Sex: Female

DRUGS (1)
  1. TOBRAMYCIN INJECTION USP [Suspect]
     Active Substance: TOBRAMYCIN
     Indication: PRODUCT USED FOR UNKNOWN INDICATION
     Dosage: 160 MG, BID (2 EVERY 1 DAYS)
     Route: 055

REACTIONS (7)
  - Migraine [Recovered/Resolved]
  - Respiratory distress [Recovered/Resolved]
  - Cyanosis [Recovered/Resolved]
  - Headache [Recovered/Resolved]
  - Staphylococcal infection [Recovered/Resolved]
  - Dyspnoea [Recovered/Resolved]
  - Laryngospasm [Recovered/Resolved]
